FAERS Safety Report 4511699-3 (Version None)
Quarter: 2004Q4

REPORT INFORMATION
  Report Type: 
  Country: None (occurrence: None)
  Receive Date: 20041129
  Receipt Date: 20041116
  Transmission Date: 20050328
  Serious: Yes (Hospitalization)
  Sender: FDA-Public Use
  Company Number: AU-AMGEN-US099589

PATIENT
  Sex: Male

DRUGS (8)
  1. DARBEPOETIN ALFA [Suspect]
     Indication: ANAEMIA OF MALIGNANT DISEASE
     Route: 058
     Dates: start: 20041102
  2. THALIDOMIDE [Suspect]
     Dates: start: 20041108
  3. FLUCONAZOLE [Concomitant]
  4. BACTRIM [Concomitant]
  5. AMLODIPINE [Concomitant]
  6. ATACAND [Concomitant]
  7. DEXAMETHASONE [Concomitant]
     Dates: start: 20041108
  8. COLOXYL WITH SENNA [Concomitant]

REACTIONS (4)
  - ANGINA PECTORIS [None]
  - ATRIAL FIBRILLATION [None]
  - DYSPNOEA [None]
  - FEELING ABNORMAL [None]
